FAERS Safety Report 13771333 (Version 1)
Quarter: 2017Q3

REPORT INFORMATION
  Report Type: Spontaneous
  Country: US (occurrence: US)
  Receive Date: 20170720
  Receipt Date: 20170720
  Transmission Date: 20171127
  Serious: Yes (Hospitalization)
  Sender: FDA-Public Use
  Company Number: US-JNJCP-30000396839

PATIENT
  Sex: Female

DRUGS (1)
  1. NEUTROGENA PURE AND FREE BABY SUNSCREEN BROAD SPECTRUM SPF60 PLUS [Suspect]
     Active Substance: TITANIUM DIOXIDE\ZINC OXIDE
     Indication: PRODUCT USED FOR UNKNOWN INDICATION
     Route: 061
     Dates: start: 20170704

REACTIONS (4)
  - Application site pruritus [Unknown]
  - Application site erythema [Unknown]
  - Eye swelling [Unknown]
  - Application site swelling [Unknown]

NARRATIVE: CASE EVENT DATE: 20170704
